FAERS Safety Report 19155021 (Version 1)
Quarter: 2021Q2

REPORT INFORMATION
  Report Type: Spontaneous
  Country: IT (occurrence: IT)
  Receive Date: 20210419
  Receipt Date: 20210419
  Transmission Date: 20210717
  Serious: Yes (Death, Other)
  Sender: FDA-Public Use
  Company Number: IT-PFIZER INC-2021387459

PATIENT
  Age: 53 Year
  Sex: Male

DRUGS (3)
  1. PANTORC [Suspect]
     Active Substance: PANTOPRAZOLE SODIUM
     Indication: ABDOMINAL PAIN UPPER
     Dosage: UNK
     Route: 065
  2. PERIDON [DOMPERIDONE] [Concomitant]
     Indication: GASTROOESOPHAGEAL REFLUX DISEASE
     Dosage: UNK UNK, BID
     Route: 048
  3. GAVISCON ADVANCE [SODIUM ALGINATE] [Concomitant]
     Dosage: UNK UNK, BID
     Route: 048

REACTIONS (2)
  - Atherosclerotic plaque rupture [Fatal]
  - Cerebrovascular accident [Fatal]

NARRATIVE: CASE EVENT DATE: 20191125
